FAERS Safety Report 8618843-7 (Version None)
Quarter: 2012Q3

REPORT INFORMATION
  Report Type: 
  Country: None (occurrence: None)
  Receive Date: 20120816
  Receipt Date: 20120816
  Transmission Date: 20120928
  Serious: Yes (Death, Life-Threatening, Hospitalization)
  Sender: FDA-Public Use
  Company Number: None

PATIENT
  Sex: Female
  Weight: 41.55 kg

DRUGS (1)
  1. TAXOL [Suspect]
     Indication: OVARIAN CANCER
     Dosage: 231 MG X 1 IV
     Route: 042
     Dates: start: 20120615

REACTIONS (8)
  - DYSPNOEA [None]
  - AGITATION [None]
  - CYANOSIS [None]
  - BLOOD PRESSURE IMMEASURABLE [None]
  - PANIC REACTION [None]
  - INFUSION RELATED REACTION [None]
  - OXYGEN SATURATION DECREASED [None]
  - CARDIO-RESPIRATORY ARREST [None]
